FAERS Safety Report 15123235 (Version 1)
Quarter: 2018Q3

REPORT INFORMATION
  Report Type: Spontaneous
  Country: IT (occurrence: IT)
  Receive Date: 20180709
  Receipt Date: 20180709
  Transmission Date: 20181010
  Serious: Yes (Disabling)
  Sender: FDA-Public Use
  Company Number: PHHY2018IT039932

PATIENT
  Age: 51 Year
  Sex: Female

DRUGS (1)
  1. ZOMETA [Suspect]
     Active Substance: ZOLEDRONIC ACID
     Indication: PRODUCT USED FOR UNKNOWN INDICATION
     Dosage: 4 MG, UNK (MG/100 ML SOLUTION FOR INFUSION)
     Route: 065

REACTIONS (3)
  - Fistula [Unknown]
  - Bone lesion [Unknown]
  - Dissociation [Unknown]

NARRATIVE: CASE EVENT DATE: 20170213
